FAERS Safety Report 21680144 (Version 2)
Quarter: 2023Q1

REPORT INFORMATION
  Report Type: Spontaneous
  Country: US (occurrence: US)
  Receive Date: 20221205
  Receipt Date: 20230216
  Transmission Date: 20230418
  Serious: No
  Sender: FDA-Public Use
  Company Number: US-ViiV Healthcare Limited-88441

PATIENT
  Age: 47 Year
  Sex: Male

DRUGS (2)
  1. RILPIVIRINE [Suspect]
     Active Substance: RILPIVIRINE
     Indication: Product used for unknown indication
     Dosage: UNK,600MG/900MG
     Route: 030
     Dates: start: 20220913, end: 20221013
  2. CABOTEGRAVIR [Suspect]
     Active Substance: CABOTEGRAVIR
     Indication: Product used for unknown indication
     Dosage: UNK,600MG/900MG
     Route: 030
     Dates: start: 20220913, end: 20221013

REACTIONS (1)
  - Diarrhoea [Recovering/Resolving]
